FAERS Safety Report 8882288 (Version 2)
Quarter: 2013Q1

REPORT INFORMATION
  Report Type: Report from Study
  Country: JP (occurrence: JP)
  Receive Date: 20121102
  Receipt Date: 20130201
  Transmission Date: 20140127
  Serious: Yes (Life-Threatening, Hospitalization)
  Sender: FDA-Public Use
  Company Number: JP-009507513-2011SP030233

PATIENT
  Age: 51 Year
  Sex: Female

DRUGS (12)
  1. REBETOL [Suspect]
     Indication: HEPATITIS C
     Dosage: 200 MG, 400 MG, BID(DAILY DOSE UNKNOWN)
     Route: 048
     Dates: start: 20110427, end: 20110529
  2. REBETOL [Suspect]
     Dosage: 400 MG (200 MG, 200 MG) WAS TAKEN ALTERNATING WITH 600 MG (200 MG 400 MG)
     Route: 048
     Dates: start: 20110530, end: 20110612
  3. REBETOL [Suspect]
     Dosage: 200 MG, 400 MG, BID (DAILY DOSE UNKNOWN)
     Route: 048
     Dates: start: 20110613, end: 20110615
  4. FERON [Suspect]
     Indication: HEPATITIS C
     Dosage: 6 MILLION IU, QD
     Route: 041
     Dates: start: 20110427, end: 20110514
  5. FERON [Suspect]
     Dosage: 6 MILLION IU, 5 IN 1 WEEK
     Route: 041
     Dates: start: 20110516, end: 20110520
  6. FERON [Suspect]
     Dosage: 6 MILLION IU, TIW
     Route: 041
     Dates: start: 20110523, end: 20110615
  7. SELBEX [Concomitant]
     Indication: GASTRITIS PROPHYLAXIS
     Dosage: 50 MG, QD(DIVIDED DOSE FREQUENCY UNKNOWN)
     Route: 048
     Dates: start: 20110427, end: 20110514
  8. SELBEX [Concomitant]
     Dosage: 50 MG(DIVIDED DOSE FREQUENCY UNKNOWN)5 IN 1 WEEK
     Route: 048
     Dates: start: 20110516, end: 20110520
  9. SELBEX [Concomitant]
     Dosage: 50 MG,TIW (DIVIDED DOSE FREQUENCY UNKNOWN)
     Route: 048
     Dates: start: 20110523, end: 20110615
  10. LOXOPROFEN [Concomitant]
     Indication: PROPHYLAXIS
     Dosage: 60 MG,QD DIVIDED DOSE FREQUENCY UNKNOWN
     Route: 048
     Dates: start: 20110427, end: 20110514
  11. LOXOPROFEN [Concomitant]
     Dosage: 60 MG, DIVIDED DOSE FREQUENCY UNKNOWN, 5 IN 1 WEEK
     Route: 048
     Dates: start: 20110516, end: 20110520
  12. LOXOPROFEN [Concomitant]
     Dosage: 60 MG, DIVIDED DOSE FREQUENCY UNKNOWN, 3 PER WEEK
     Route: 048
     Dates: start: 20110523, end: 20110615

REACTIONS (3)
  - Ruptured cerebral aneurysm [Recovered/Resolved]
  - Subarachnoid haemorrhage [Recovered/Resolved]
  - Pyrexia [Recovered/Resolved]
